FAERS Safety Report 5891617-6 (Version None)
Quarter: 2008Q3

REPORT INFORMATION
  Report Type: 
  Country: None (occurrence: None)
  Receive Date: 20080922
  Receipt Date: 20080916
  Transmission Date: 20090109
  Serious: Yes (Other)
  Sender: FDA-Public Use
  Company Number: US-PFIZER INC-2008078351

PATIENT
  Sex: Male
  Weight: 79.4 kg

DRUGS (13)
  1. LIPITOR [Suspect]
     Indication: BLOOD CHOLESTEROL
     Dates: end: 20080912
  2. ACETYLSALICYLIC ACID SRT [Concomitant]
  3. MULTI-VITAMINS [Concomitant]
  4. AVODART [Concomitant]
  5. SAW PALMETTO [Concomitant]
  6. VITAMIN B-12 [Concomitant]
  7. CHONDROITIN/GLUCOSAMINE [Concomitant]
  8. FISH OIL [Concomitant]
  9. XANAX [Concomitant]
  10. PERCOCET [Concomitant]
  11. VIAGRA [Concomitant]
  12. ATENOLOL [Concomitant]
  13. ANTIDIARRHOEAL MICROORGANISMS [Concomitant]

REACTIONS (2)
  - BLOOD CREATININE INCREASED [None]
  - MYALGIA [None]
